FAERS Safety Report 5091326-X (Version None)
Quarter: 2006Q3

REPORT INFORMATION
  Report Type: 
  Country: None (occurrence: None)
  Receive Date: 20060824
  Receipt Date: 20060815
  Transmission Date: 20061208
  Serious: Yes (Hospitalization, Disabling, Other)
  Sender: FDA-Public Use
  Company Number: 2006068691

PATIENT
  Age: 81 Year
  Sex: Female
  Weight: 30.1 kg

DRUGS (3)
  1. CABERGOLINE [Suspect]
     Indication: PARKINSON'S DISEASE
     Dosage: ONCE DAILY, ORAL
     Route: 048
     Dates: start: 20060312, end: 20060528
  2. MENESIT (CARBIDOPA, LEVODOPA) [Concomitant]
  3. RABEPRAZOLE SODIUM [Concomitant]

REACTIONS (5)
  - HYPOALBUMINAEMIA [None]
  - HYPOPROTEINAEMIA [None]
  - PLEURAL EFFUSION [None]
  - PNEUMONIA [None]
  - RESPIRATORY FAILURE [None]
